FAERS Safety Report 9779893 (Version 1)
Quarter: 2013Q4

REPORT INFORMATION
  Report Type: Spontaneous
  Country: BE (occurrence: BE)
  Receive Date: 20131223
  Receipt Date: 20131223
  Transmission Date: 20140711
  Serious: Yes (Death, Other)
  Sender: FDA-Public Use
  Company Number: PHHY2013BE148198

PATIENT
  Age: 69 Year
  Sex: Male

DRUGS (13)
  1. FLUCONAZOLE [Suspect]
     Indication: INFECTIVE TENOSYNOVITIS
     Dosage: 200 MG, BID
     Route: 048
  2. VORICONAZOLE [Suspect]
     Indication: INFECTIVE TENOSYNOVITIS
     Dosage: 300 MG, BID
     Route: 048
  3. VORICONAZOLE [Suspect]
     Dosage: 200 MG, BID
  4. VORICONAZOLE [Suspect]
     Indication: INFECTIVE TENOSYNOVITIS
     Route: 042
  5. DIGOXINE [Concomitant]
     Dosage: 0.250 MG, UNK
  6. MOLSIDOMINE [Concomitant]
     Dosage: 16 MG, UNK
  7. ALTIZIDE [Concomitant]
     Dosage: 15 MG, UNK
  8. SPIRONOLACTON [Concomitant]
     Dosage: 25 MG, UNK
  9. AMITRIPTYLINE [Concomitant]
     Dosage: 100 MG, UNK
  10. TRAMADOL [Concomitant]
     Dosage: 50 MG, UNK
  11. INSULIN [Concomitant]
     Indication: DIABETES MELLITUS
     Dosage: 40 U, UNK
  12. FLUTICASONE PROPIONATE W/SALMETEROL [Concomitant]
     Dosage: 300 UG, UNK
     Route: 055
  13. FENOTEROL W/IPRATROPIUM [Concomitant]
     Dosage: 70 UG, UNK
     Route: 055

REACTIONS (7)
  - Bacterial sepsis [Fatal]
  - Infective tenosynovitis [Unknown]
  - Local swelling [Unknown]
  - Pain in extremity [Unknown]
  - Disease recurrence [Unknown]
  - Pathogen resistance [Unknown]
  - Treatment failure [Unknown]
